FAERS Safety Report 25730948 (Version 1)
Quarter: 2025Q3

REPORT INFORMATION
  Report Type: Spontaneous
  Country: US (occurrence: None)
  Receive Date: 20250826
  Receipt Date: 20250826
  Transmission Date: 20251021
  Serious: No
  Sender: FDA-CTU
  Company Number: None

PATIENT

DRUGS (1)
  1. GLATOPA [Suspect]
     Active Substance: GLATIRAMER ACETATE

REACTIONS (5)
  - Therapy interrupted [None]
  - Paraesthesia [None]
  - Feeling of body temperature change [None]
  - Restlessness [None]
  - Skin burning sensation [None]
